FAERS Safety Report 6332095-2 (Version None)
Quarter: 2009Q3

REPORT INFORMATION
  Report Type: 
  Country: None (occurrence: None)
  Receive Date: 20090827
  Receipt Date: 20090827
  Transmission Date: 20100115
  Serious: Yes (Life-Threatening, Hospitalization, Other)
  Sender: FDA-Public Use
  Company Number: None

PATIENT
  Age: 61 Year
  Sex: Male
  Weight: 87.9978 kg

DRUGS (2)
  1. NAPROXEN [Suspect]
     Indication: SWELLING
     Dosage: 1 TABLET TWICE DAILY PO
     Route: 048
     Dates: start: 20090724, end: 20090725
  2. NAPROXEN [Suspect]
     Indication: WRIST FRACTURE
     Dosage: 1 TABLET TWICE DAILY PO
     Route: 048
     Dates: start: 20090724, end: 20090725

REACTIONS (8)
  - BLOOD COUNT ABNORMAL [None]
  - BLOOD PRESSURE DECREASED [None]
  - DIARRHOEA [None]
  - DIZZINESS [None]
  - FAECES DISCOLOURED [None]
  - GASTRIC ULCER [None]
  - HAEMORRHAGE [None]
  - HYPERHIDROSIS [None]
